FAERS Safety Report 9286527 (Version 1)
Quarter: 2013Q2

REPORT INFORMATION
  Report Type: Spontaneous
  Country: US (occurrence: US)
  Receive Date: 20130513
  Receipt Date: 20130513
  Transmission Date: 20140414
  Serious: Yes (Hospitalization)
  Sender: FDA-Public Use
  Company Number: US-ELI_LILLY_AND_COMPANY-US201305002726

PATIENT
  Age: 63 Year
  Sex: Female
  Weight: 62.59 kg

DRUGS (4)
  1. ADCIRCA [Suspect]
     Dosage: UNK
     Route: 048
     Dates: start: 20130430
  2. REMODULIN [Concomitant]
     Indication: COR PULMONALE CHRONIC
     Dosage: 12 NG/KG/MIN
     Route: 058
     Dates: start: 20121022
  3. LETAIRIS [Concomitant]
  4. SILDENAFIL [Concomitant]

REACTIONS (5)
  - Face oedema [Unknown]
  - Headache [Unknown]
  - Nausea [Unknown]
  - Vomiting [Unknown]
  - Abdominal pain upper [Unknown]
